FAERS Safety Report 6152041-4 (Version None)
Quarter: 2009Q2

REPORT INFORMATION
  Report Type: 
  Country: None (occurrence: None)
  Receive Date: 20090410
  Receipt Date: 20090406
  Transmission Date: 20091009
  Serious: Yes (Other)
  Sender: FDA-Public Use
  Company Number: US-CVT-090120

PATIENT

DRUGS (24)
  1. RANEXA [Suspect]
     Indication: ANGINA PECTORIS
     Dosage: 500 MG, BID
     Route: 048
     Dates: start: 20080527, end: 20090301
  2. LANOXIN [Concomitant]
     Indication: DRUG USE FOR UNKNOWN INDICATION
     Dosage: 25 MG, QD
     Route: 048
  3. PREMARIN [Concomitant]
     Indication: DRUG USE FOR UNKNOWN INDICATION
     Dosage: 0.625 MG, QD
     Route: 048
  4. IMDUR [Concomitant]
     Indication: DRUG USE FOR UNKNOWN INDICATION
     Dosage: 120 MG, QD
     Route: 048
  5. TOPROL-XL [Concomitant]
     Indication: DRUG USE FOR UNKNOWN INDICATION
     Dosage: 50 MG, TID
     Route: 048
  6. FUROSEMIDE                         /00032601/ [Concomitant]
     Indication: DRUG USE FOR UNKNOWN INDICATION
     Dosage: 20 MG, BID
     Route: 048
  7. NEXIUM [Concomitant]
     Indication: DRUG USE FOR UNKNOWN INDICATION
     Dosage: 40 MG, QD
     Route: 048
  8. ACTONEL [Concomitant]
     Indication: DRUG USE FOR UNKNOWN INDICATION
     Dosage: 35 MG, Q WEEKLY
     Route: 048
  9. VYTORIN [Concomitant]
     Indication: DRUG USE FOR UNKNOWN INDICATION
     Dosage: QD
     Route: 048
  10. CAPTOPRIL [Concomitant]
     Indication: DRUG USE FOR UNKNOWN INDICATION
     Dosage: 12.5 MG, TID
     Route: 048
  11. COUMADIN [Concomitant]
     Indication: DRUG USE FOR UNKNOWN INDICATION
     Dosage: 5 MG, UNK
     Route: 048
  12. ASCORBIC ACID [Concomitant]
     Indication: DRUG USE FOR UNKNOWN INDICATION
  13. VITAMIN D [Concomitant]
     Indication: DRUG USE FOR UNKNOWN INDICATION
  14. CALCIUM MAGNESIUM ZINC [Concomitant]
     Indication: DRUG USE FOR UNKNOWN INDICATION
  15. CHLOROPHYLL                        /00315801/ [Concomitant]
     Indication: DRUG USE FOR UNKNOWN INDICATION
  16. LOVAZA [Concomitant]
     Indication: DRUG USE FOR UNKNOWN INDICATION
  17. VITAMIN B12 NOS [Concomitant]
     Indication: DRUG USE FOR UNKNOWN INDICATION
  18. MULTI-VIT [Concomitant]
     Indication: DRUG USE FOR UNKNOWN INDICATION
  19. VITAMIN B COMPLEX CAP [Concomitant]
     Indication: DRUG USE FOR UNKNOWN INDICATION
  20. FOLIC ACID [Concomitant]
     Indication: DRUG USE FOR UNKNOWN INDICATION
  21. VITAMIN E /00110501/ [Concomitant]
     Indication: DRUG USE FOR UNKNOWN INDICATION
  22. ZINC                               /00156501/ [Concomitant]
     Indication: DRUG USE FOR UNKNOWN INDICATION
  23. ASPIRIN [Concomitant]
     Indication: DRUG USE FOR UNKNOWN INDICATION
  24. SELENIUM MICROSOL [Concomitant]
     Indication: DRUG USE FOR UNKNOWN INDICATION

REACTIONS (4)
  - ABDOMINAL PAIN [None]
  - APATHY [None]
  - CYST [None]
  - OVARIAN MASS [None]
